FAERS Safety Report 9538884 (Version 1)
Quarter: 2013Q3

REPORT INFORMATION
  Report Type: Spontaneous
  Country: US (occurrence: US)
  Receive Date: 20130920
  Receipt Date: 20130920
  Transmission Date: 20140515
  Serious: No
  Sender: FDA-Public Use
  Company Number: US-BAYER-2013-113599

PATIENT
  Sex: Female

DRUGS (1)
  1. NATAZIA [Suspect]
     Route: 048

REACTIONS (2)
  - Drug administration error [None]
  - Extra dose administered [None]
